FAERS Safety Report 9254133 (Version 1)
Quarter: 2013Q2

REPORT INFORMATION
  Report Type: Spontaneous
  Country: US (occurrence: None)
  Receive Date: 20130422
  Receipt Date: 20130422
  Transmission Date: 20140414
  Serious: Yes (Hospitalization)
  Sender: FDA-Public Use
  Company Number: 2013PROUSA02723

PATIENT
  Age: 84 Year
  Sex: Male
  Weight: 81.2 kg

DRUGS (1)
  1. PROVENGE (SIPULEUCEL-T) SUSPENSION, 250ML [Suspect]
     Indication: PROSTATE CANCER METASTATIC
     Route: 042
     Dates: start: 20130308, end: 20130308

REACTIONS (4)
  - Dehydration [None]
  - Asthenia [None]
  - Fatigue [None]
  - Staphylococcal infection [None]
